FAERS Safety Report 13709354 (Version 1)
Quarter: 2017Q3

REPORT INFORMATION
  Report Type: Spontaneous
  Country: NL (occurrence: NL)
  Receive Date: 20170703
  Receipt Date: 20170703
  Transmission Date: 20171127
  Serious: Yes (Hospitalization)
  Sender: FDA-Public Use
  Company Number: NL-CHARTWELL PHARMA-2022845

PATIENT
  Age: 58 Year
  Sex: Male

DRUGS (2)
  1. METFORMIN HYDROCHLORIDE. [Suspect]
     Active Substance: METFORMIN HYDROCHLORIDE
     Indication: DRUG RESISTANCE
  2. EVEROLIMUS [Interacting]
     Active Substance: EVEROLIMUS

REACTIONS (6)
  - Drug interaction [Unknown]
  - Oesophageal obstruction [Unknown]
  - Gastric cancer [None]
  - Malignant neoplasm progression [None]
  - Bile duct stenosis [Unknown]
  - Disease progression [Unknown]
